FAERS Safety Report 21853550 (Version 1)
Quarter: 2023Q1

REPORT INFORMATION
  Report Type: Report from Study
  Country: US (occurrence: US)
  Receive Date: 20230112
  Receipt Date: 20230112
  Transmission Date: 20230417
  Serious: Yes (Other)
  Sender: FDA-Public Use
  Company Number: US-TAKEDA-2022TUS064667

PATIENT
  Age: 63 Year
  Sex: Male

DRUGS (2)
  1. RECOMBINATE [Suspect]
     Active Substance: ANTIHEMOPHILIC FACTOR, HUMAN RECOMBINANT
     Indication: Product used for unknown indication
     Dosage: 2000 INTERNATIONAL UNIT
     Route: 042
  2. RECOMBINATE [Suspect]
     Active Substance: ANTIHEMOPHILIC FACTOR, HUMAN RECOMBINANT
     Dosage: 1930 INTERNATIONAL UNIT
     Route: 065

REACTIONS (7)
  - Contusion [Unknown]
  - Herpes zoster [Unknown]
  - Ocular hyperaemia [Unknown]
  - Oral pain [Unknown]
  - Glossodynia [Unknown]
  - Back pain [Unknown]
  - Poor venous access [Unknown]

NARRATIVE: CASE EVENT DATE: 20230105
